FAERS Safety Report 8496525-2 (Version None)
Quarter: 2012Q3

REPORT INFORMATION
  Report Type: 
  Country: None (occurrence: None)
  Receive Date: 20120709
  Receipt Date: 20120705
  Transmission Date: 20120928
  Serious: Yes (Life-Threatening, Hospitalization)
  Sender: FDA-Public Use
  Company Number: NL-B.I. PHARMACEUTICALS,INC./RIDGEFIELD-2012-RD-00231EU

PATIENT
  Sex: Female
  Weight: 53.8 kg

DRUGS (16)
  1. METFORMIN HCL [Suspect]
     Indication: TYPE 2 DIABETES MELLITUS
     Dosage: 1500 MG
     Route: 048
     Dates: start: 20061002, end: 20120410
  2. NOVORAPID [Concomitant]
     Indication: TYPE 2 DIABETES MELLITUS
     Dosage: 38 MU
     Route: 058
     Dates: start: 20120704
  3. ATORVASTATIN [Concomitant]
     Indication: ATHEROSCLEROSIS PROPHYLAXIS
  4. NOVORAPID [Concomitant]
     Dosage: 32 MU
     Route: 058
     Dates: start: 20120508, end: 20120704
  5. PERINDOPRIL ERBUMINE [Concomitant]
     Indication: HYPERTENSION
  6. ACTOS [Concomitant]
     Indication: TYPE 2 DIABETES MELLITUS
     Dosage: 45 MG
     Route: 048
     Dates: start: 20120217, end: 20120508
  7. LEVEMIR [Concomitant]
     Indication: TYPE 2 DIABETES MELLITUS
     Dosage: 32 MU
     Route: 058
     Dates: start: 20120509, end: 20120607
  8. BI 1356 [Suspect]
     Indication: TYPE 2 DIABETES MELLITUS
     Dosage: 5 MG
     Dates: start: 20111027, end: 20120508
  9. ASCAL [Concomitant]
     Indication: ATHEROSCLEROSIS PROPHYLAXIS
  10. RANIBIZUMAB [Concomitant]
     Indication: MACULAR OEDEMA
  11. TRIAL PROCEDURE [Suspect]
     Indication: TYPE 2 DIABETES MELLITUS
  12. METFORMIN HCL [Suspect]
     Dosage: 1000 MG
     Route: 048
     Dates: start: 20120410, end: 20120502
  13. NEXIUM [Concomitant]
     Indication: GASTRITIS
     Dosage: 20 MG
     Route: 048
     Dates: start: 20111229, end: 20120502
  14. INDAPAMIDE [Concomitant]
     Indication: HYPERTENSION
     Dates: start: 20120213
  15. CHLOORAMPENICOL [Concomitant]
     Indication: MACULAR OEDEMA
  16. LEVEMIR [Concomitant]
     Dosage: 28 MU
     Route: 058
     Dates: start: 20120607

REACTIONS (3)
  - RENAL CELL CARCINOMA [None]
  - HYPERGLYCAEMIA [None]
  - COLITIS MICROSCOPIC [None]
